FAERS Safety Report 10096028 (Version 1)
Quarter: 2014Q2

REPORT INFORMATION
  Report Type: Spontaneous
  Country: GB (occurrence: GB)
  Receive Date: 20140422
  Receipt Date: 20140422
  Transmission Date: 20141212
  Serious: Yes (Death, Hospitalization)
  Sender: FDA-Public Use
  Company Number: PHHY2014GB045955

PATIENT
  Age: 58 Year
  Sex: Male

DRUGS (6)
  1. DEXAMETHASONE [Suspect]
     Dosage: 4 MG, UNK
  2. ATENOLOL [Concomitant]
  3. LISINOPRIL [Concomitant]
  4. METFORMIN [Concomitant]
  5. LEVOTHYROXINE [Concomitant]
  6. TEMOZOLOMIDE [Concomitant]

REACTIONS (6)
  - Death [Fatal]
  - Osmotic demyelination syndrome [Unknown]
  - Quadriplegia [Unknown]
  - Locked-in syndrome [Unknown]
  - Body temperature decreased [Unknown]
  - Hyperglycaemia [Unknown]
